FAERS Safety Report 12643289 (Version 2)
Quarter: 2016Q3

REPORT INFORMATION
  Report Type: Spontaneous
  Country: US (occurrence: US)
  Receive Date: 20160811
  Receipt Date: 20160819
  Transmission Date: 20161109
  Serious: Yes (Other)
  Sender: FDA-Public Use
  Company Number: PHEH2016US019513

PATIENT
  Age: 57 Year
  Sex: Female
  Weight: 81 kg

DRUGS (1)
  1. GLEEVEC [Suspect]
     Active Substance: IMATINIB MESYLATE
     Indication: GASTROINTESTINAL STROMAL TUMOUR
     Dosage: 400 MG, BID
     Route: 065
     Dates: start: 2014, end: 201506

REACTIONS (8)
  - Recurrent cancer [Unknown]
  - Metastases to liver [Unknown]
  - Atelectasis [Unknown]
  - Diverticulitis [Unknown]
  - Lip dry [Unknown]
  - Uterine leiomyoma [Unknown]
  - Gastrointestinal stromal tumour [Unknown]
  - Rash [Unknown]

NARRATIVE: CASE EVENT DATE: 201406
